FAERS Safety Report 9049766 (Version 1)
Quarter: 2013Q1

REPORT INFORMATION
  Report Type: Spontaneous
  Country: US (occurrence: US)
  Receive Date: 20130205
  Receipt Date: 20130205
  Transmission Date: 20140127
  Serious: Yes (Other)
  Sender: FDA-Public Use
  Company Number: US-BAYER-2013-014179

PATIENT
  Age: 35 Year
  Sex: Female

DRUGS (4)
  1. OCELLA [Suspect]
  2. ALPRAZOLAM [Concomitant]
     Dosage: 0.25 MG, UNK
     Route: 048
     Dates: start: 20090620
  3. HYDROCODONE/APAP [Concomitant]
     Dosage: 5-500 MG
     Route: 048
     Dates: start: 20090621
  4. AMOXICILLIN W/CLAVULANATE POTASSIUM [Concomitant]
     Dosage: 875 MG, UNK
     Route: 048
     Dates: start: 20090621

REACTIONS (1)
  - Deep vein thrombosis [None]
